FAERS Safety Report 23980560 (Version 1)
Quarter: 2024Q2

REPORT INFORMATION
  Report Type: Other
  Country: CN (occurrence: CN)
  Receive Date: 20240617
  Receipt Date: 20240617
  Transmission Date: 20240715
  Serious: Yes (Hospitalization)
  Sender: FDA-Public Use
  Company Number: CN-QILU PHARMACEUTICAL (HAINAN) CO.  LTD.-QLH-000106-2024

PATIENT
  Age: 43 Year
  Sex: Male
  Weight: 56 kg

DRUGS (2)
  1. IRINOTECAN HYDROCHLORIDE [Suspect]
     Active Substance: IRINOTECAN HYDROCHLORIDE
     Indication: Ureteric cancer
     Dosage: 250 MG ONCE DAILY (QD), AT 8:00
     Route: 041
     Dates: start: 20240528, end: 20240528
  2. SODIUM CHLORIDE [Concomitant]
     Active Substance: SODIUM CHLORIDE
     Indication: Ureteric cancer
     Dosage: 250 ML ONCE DAILY, AT 8:00
     Route: 041
     Dates: start: 20240528, end: 20240528

REACTIONS (2)
  - Hiccups [Recovered/Resolved]
  - Product use in unapproved indication [Recovered/Resolved]

NARRATIVE: CASE EVENT DATE: 20240528
